FAERS Safety Report 25044054 (Version 2)
Quarter: 2025Q2

REPORT INFORMATION
  Report Type: Report from Study
  Country: US (occurrence: US)
  Receive Date: 20250306
  Receipt Date: 20250429
  Transmission Date: 20250716
  Serious: No
  Sender: SUNOVION
  Company Number: US-SUMITOMO PHARMA SWITZERLAND GMBH-2025SPA001446

PATIENT

DRUGS (2)
  1. ORGOVYX [Suspect]
     Active Substance: RELUGOLIX
     Indication: Prostate cancer
     Route: 048
     Dates: start: 20250123, end: 20250123
  2. ORGOVYX [Suspect]
     Active Substance: RELUGOLIX
     Dosage: 120 MG, QD
     Route: 048
     Dates: start: 20250124

REACTIONS (7)
  - Blood potassium decreased [Unknown]
  - Arthropathy [Unknown]
  - Sluggishness [Unknown]
  - Brain fog [Unknown]
  - Hot flush [Unknown]
  - Hyperhidrosis [Unknown]
  - Loss of libido [Unknown]
